FAERS Safety Report 8461878-8 (Version None)
Quarter: 2012Q2

REPORT INFORMATION
  Report Type: 
  Country: None (occurrence: None)
  Receive Date: 20120323
  Receipt Date: 20111101
  Transmission Date: 20120825
  Serious: Yes (Other)
  Sender: FDA-Public Use
  Company Number: 163-21880-11093104

PATIENT
  Age: 88 Year
  Sex: Male

DRUGS (7)
  1. ROCALTROL [Concomitant]
  2. DECADRON [Concomitant]
  3. REVLIMID [Suspect]
     Indication: MULTIPLE MYELOMA
     Dosage: 5 MG, 1 IN 1 D, PO, 5 MG, 1 IN 1 D, PO, 1.4286 MG, 2 IN 1 WK, PO
     Route: 048
     Dates: start: 20110511, end: 20110514
  4. REVLIMID [Suspect]
     Indication: MULTIPLE MYELOMA
     Dosage: 5 MG, 1 IN 1 D, PO, 5 MG, 1 IN 1 D, PO, 1.4286 MG, 2 IN 1 WK, PO
     Route: 048
     Dates: start: 20110516, end: 20110101
  5. REVLIMID [Suspect]
     Indication: MULTIPLE MYELOMA
     Dosage: 5 MG, 1 IN 1 D, PO, 5 MG, 1 IN 1 D, PO, 1.4286 MG, 2 IN 1 WK, PO
     Route: 048
     Dates: start: 20110718
  6. PROCRIT [Concomitant]
  7. DIGOXIN [Concomitant]

REACTIONS (5)
  - MULTIPLE MYELOMA [None]
  - BLOOD CREATININE INCREASED [None]
  - DEHYDRATION [None]
  - NEOPLASM PROGRESSION [None]
  - NEUTROPENIA [None]
